FAERS Safety Report 17450355 (Version 1)
Quarter: 2020Q1

REPORT INFORMATION
  Report Type: Spontaneous
  Country: IT (occurrence: IT)
  Receive Date: 20200224
  Receipt Date: 20200224
  Transmission Date: 20200409
  Serious: Yes (Death)
  Sender: FDA-Public Use
  Company Number: IT-ROCHE-2548823

PATIENT
  Age: 76 Year
  Sex: Male

DRUGS (10)
  1. SEQUACOR [Concomitant]
     Active Substance: BISOPROLOL
  2. ROACTEMRA [Suspect]
     Active Substance: TOCILIZUMAB
     Indication: SCLERODERMA
     Route: 058
     Dates: start: 20191010, end: 20191221
  3. PANTORC [Concomitant]
     Active Substance: PANTOPRAZOLE SODIUM
  4. BOSENTAN. [Concomitant]
     Active Substance: BOSENTAN
  5. DELTACORTENE [Suspect]
     Active Substance: PREDNISONE
     Indication: MYOSITIS
     Route: 048
     Dates: start: 20181123
  6. TORVAST [Concomitant]
     Active Substance: ATORVASTATIN
  7. COUMADIN [Concomitant]
     Active Substance: WARFARIN SODIUM
  8. LASIX [Concomitant]
     Active Substance: FUROSEMIDE
  9. REUMAFLEX (ITALY) [Suspect]
     Active Substance: METHOTREXATE SODIUM
     Indication: MYOSITIS
     Route: 058
     Dates: start: 20181123, end: 20200120
  10. LASITONE [Concomitant]
     Active Substance: FUROSEMIDE\SPIRONOLACTONE

REACTIONS (4)
  - Pleural effusion [Fatal]
  - Asthenia [Fatal]
  - Gravitational oedema [Fatal]
  - Septic shock [Fatal]

NARRATIVE: CASE EVENT DATE: 20200120
